FAERS Safety Report 19166519 (Version 6)
Quarter: 2022Q3

REPORT INFORMATION
  Report Type: Report from Study
  Country: JP (occurrence: JP)
  Receive Date: 20210422
  Receipt Date: 20220803
  Transmission Date: 20221027
  Serious: Yes (Hospitalization)
  Sender: FDA-Public Use
  Company Number: JP-ONO-2020JP014528

PATIENT
  Age: 76 Year
  Sex: Female
  Weight: 47.6 kg

DRUGS (23)
  1. ETELCALCETIDE [Suspect]
     Active Substance: ETELCALCETIDE
     Indication: Hyperparathyroidism secondary
     Dosage: 5 MILLIGRAM, Q56H
     Route: 010
     Dates: start: 20190308, end: 20190612
  2. ETELCALCETIDE [Suspect]
     Active Substance: ETELCALCETIDE
     Dosage: 10 MILLIGRAM, Q56H
     Route: 010
     Dates: start: 20190614, end: 20220608
  3. ETELCALCETIDE [Suspect]
     Active Substance: ETELCALCETIDE
     Dosage: 12.5 MILLIGRAM, Q56H
     Route: 010
     Dates: start: 20220610
  4. DARBEPOETIN ALFA [Concomitant]
     Active Substance: DARBEPOETIN ALFA
     Dosage: 30 MICROGRAM, QWK
     Route: 065
     Dates: end: 20190802
  5. DARBEPOETIN ALFA [Concomitant]
     Active Substance: DARBEPOETIN ALFA
     Dosage: 30 MICROGRAM, QWK
     Route: 065
     Dates: start: 20190809, end: 20191108
  6. DARBEPOETIN ALFA [Concomitant]
     Active Substance: DARBEPOETIN ALFA
     Dosage: 20 MICROGRAM, QWK
     Route: 065
     Dates: start: 20191115, end: 20200619
  7. DARBEPOETIN ALFA [Concomitant]
     Active Substance: DARBEPOETIN ALFA
     Dosage: 30 MICROGRAM, QWK
     Route: 065
     Dates: start: 20200626, end: 20220401
  8. DARBEPOETIN ALFA [Concomitant]
     Active Substance: DARBEPOETIN ALFA
     Dosage: 15 MICROGRAM, QWK
     Dates: start: 20220406
  9. ALFACALCIDOL [Concomitant]
     Active Substance: ALFACALCIDOL
     Dosage: 0.5 MICROGRAM, QD
     Route: 048
     Dates: end: 20190927
  10. ALFACALCIDOL [Concomitant]
     Active Substance: ALFACALCIDOL
     Dosage: 0.25 MICROGRAM, QD
     Route: 048
     Dates: start: 20190928, end: 20201015
  11. ALFACALCIDOL [Concomitant]
     Active Substance: ALFACALCIDOL
     Dosage: 0.5 MICROGRAM, QD
     Route: 048
     Dates: start: 20201016, end: 20201210
  12. ALFACALCIDOL [Concomitant]
     Active Substance: ALFACALCIDOL
     Dosage: 0.25 MICROGRAM, QD
     Route: 048
     Dates: start: 20201211, end: 20211111
  13. ALFACALCIDOL [Concomitant]
     Active Substance: ALFACALCIDOL
     Dosage: 0.5 MICROGRAM, QD
     Dates: start: 20211112, end: 20220512
  14. ALFACALCIDOL [Concomitant]
     Active Substance: ALFACALCIDOL
     Dosage: 0.25 MICROGRAM, QD
     Dates: start: 20220513
  15. CALTAN [Concomitant]
     Active Substance: CALCIUM CARBONATE
     Dosage: 3000 MG, EVERYDAY
     Route: 048
     Dates: end: 20201225
  16. CALTAN [Concomitant]
     Active Substance: CALCIUM CARBONATE
     Dosage: 1500 MG, EVERYDAY
     Route: 048
     Dates: start: 20201226
  17. FOSRENOL [Concomitant]
     Active Substance: LANTHANUM CARBONATE
     Dosage: 250 MILLIGRAM, QD
     Route: 048
     Dates: end: 20191205
  18. RENAGEL [Concomitant]
     Active Substance: SEVELAMER HYDROCHLORIDE
     Dosage: 3000 MILLIGRAM, QD
     Route: 048
  19. FERRIC CITRATE ANHYDROUS [Concomitant]
     Active Substance: FERRIC CITRATE ANHYDROUS
     Dosage: 750 MILLIGRAM, QD
     Route: 048
     Dates: end: 20201225
  20. FERRIC CITRATE ANHYDROUS [Concomitant]
     Active Substance: FERRIC CITRATE ANHYDROUS
     Dosage: 1500 MILLIGRAM, QD
     Route: 048
     Dates: start: 20201226, end: 20211024
  21. FERRIC CITRATE ANHYDROUS [Concomitant]
     Active Substance: FERRIC CITRATE ANHYDROUS
     Dosage: 750 MILLIGRAM, QD
     Dates: start: 20211025
  22. LANTHANUM CARBONATE [Concomitant]
     Active Substance: LANTHANUM CARBONATE
     Dosage: 250 MILLIGRAM, QD
     Route: 048
     Dates: start: 20191206, end: 20201211
  23. LANTHANUM CARBONATE [Concomitant]
     Active Substance: LANTHANUM CARBONATE
     Dosage: 750 MILLIGRAM, QD
     Route: 048
     Dates: start: 20201212

REACTIONS (4)
  - Large intestine polyp [Recovered/Resolved]
  - Shunt stenosis [Recovered/Resolved]
  - Shunt stenosis [Recovered/Resolved]
  - Shunt stenosis [Recovered/Resolved]

NARRATIVE: CASE EVENT DATE: 20191009
